FAERS Safety Report 10583738 (Version 3)
Quarter: 2017Q4

REPORT INFORMATION
  Report Type: Report from Study
  Country: JP (occurrence: JP)
  Receive Date: 20141114
  Receipt Date: 20171025
  Transmission Date: 20180320
  Serious: Yes (Death, Hospitalization, Other)
  Sender: FDA-Public Use
  Company Number: PHHY2011JP59295

PATIENT
  Age: 35 Year
  Sex: Male
  Weight: 60 kg

DRUGS (5)
  1. DUROTEP JANSSEN [Concomitant]
     Active Substance: FENTANYL
     Indication: METASTATIC RENAL CELL CARCINOMA
     Dosage: 42 MG, QD
     Route: 062
     Dates: start: 20110324
  2. DECADRON [Concomitant]
     Active Substance: DEXAMETHASONE
     Indication: RENAL CELL CARCINOMA
  3. AFINITOR [Suspect]
     Active Substance: EVEROLIMUS
     Indication: METASTATIC RENAL CELL CARCINOMA
     Dosage: 10 MG, QD
     Route: 048
     Dates: start: 20110514, end: 20110624
  4. HACHIAZULE [Concomitant]
     Indication: PROPHYLAXIS
     Dosage: 2 G, UNK
     Route: 048
     Dates: start: 20110514, end: 20110624
  5. DECADRON [Concomitant]
     Active Substance: DEXAMETHASONE
     Indication: METASTATIC RENAL CELL CARCINOMA
     Dosage: 2 MG, QD
     Route: 048
     Dates: start: 20110419

REACTIONS (8)
  - Feeding disorder [Unknown]
  - Vomiting [Unknown]
  - Platelet count decreased [Not Recovered/Not Resolved]
  - Death [Fatal]
  - Interstitial lung disease [Unknown]
  - Malignant neoplasm progression [Not Recovered/Not Resolved]
  - Stomatitis [Recovering/Resolving]
  - Condition aggravated [Unknown]

NARRATIVE: CASE EVENT DATE: 20110521
